FAERS Safety Report 24263214 (Version 1)
Quarter: 2024Q3

REPORT INFORMATION
  Report Type: Spontaneous
  Country: DE (occurrence: DE)
  Receive Date: 20240829
  Receipt Date: 20240829
  Transmission Date: 20241016
  Serious: Yes (Death, Other)
  Sender: SANDOZ
  Company Number: DE-002147023-NVSC2020DE070840

PATIENT
  Age: 74 Year
  Sex: Female

DRUGS (14)
  1. CYCLOPHOSPHAMIDE [Suspect]
     Active Substance: CYCLOPHOSPHAMIDE
     Indication: Neoplasm progression
     Dosage: 6 COURSES IN 4 WEEKLY INTERVALS WITH 50% DOSE REDUCTION
     Route: 065
  2. DOXORUBICIN [Suspect]
     Active Substance: DOXORUBICIN
     Indication: Diffuse large B-cell lymphoma
     Dosage: 20 MG/M2 LIPOSMAL, MODIFIED R-CHOP REGIMEN WAS ADMINISTERED IN 4-WEEKLY INTERVALS, (6 COURSES IN 4 W
     Route: 065
  3. DOXORUBICIN [Suspect]
     Active Substance: DOXORUBICIN
     Indication: Neoplasm progression
  4. CYCLOPHOSPHAMIDE [Suspect]
     Active Substance: CYCLOPHOSPHAMIDE
     Indication: Diffuse large B-cell lymphoma
     Dosage: 750 MG/M2, LYOPHILISAT, 6 COURSES, CYCLIC, MODIFIED R-CHOP REGIMEN WAS ADMINISTERED IN 4-WEEKLY INTE
     Route: 065
  5. CYCLOPHOSPHAMIDE [Suspect]
     Active Substance: CYCLOPHOSPHAMIDE
     Indication: Neoplasm progression
     Dosage: 750 MG/M2, LYOPHILISAT, MODIFIED R-CHOP REGIMEN WAS ADMINISTERED IN 4-WEEKLY INTERVALS
     Route: 065
  6. PREDNISOLONE [Suspect]
     Active Substance: PREDNISOLONE
     Indication: Diffuse large B-cell lymphoma
     Dosage: 100.000MG, MODIFIED R-CHOP REGIMEN WAS ADMINISTERED IN 4-WEEKLY INTERVALS
     Route: 065
  7. PREDNISOLONE [Suspect]
     Active Substance: PREDNISOLONE
     Indication: Diffuse large B-cell lymphoma
     Dosage: 100 MG/M2, CYCLIC 6 COURSES(MODIFIED R-CHOP REGIMEN) IN 4 WEEKLY INTERVALS WITH 50% DOSE REDUCTION
     Route: 065
  8. PREDNISOLONE [Suspect]
     Active Substance: PREDNISOLONE
     Indication: Neoplasm progression
  9. RITUXIMAB [Suspect]
     Active Substance: RITUXIMAB
     Indication: Diffuse large B-cell lymphoma
     Dosage: 375.000MG/M2, MODIFIED R-CHOP REGIMEN WAS ADMINISTERED IN 4-WEEKLY INTERVALS.
     Route: 042
  10. RITUXIMAB [Suspect]
     Active Substance: RITUXIMAB
     Indication: Diffuse large B-cell lymphoma
     Dosage: 375 MG/M2, CYCLIC 6 COURSES (MODIFIED R-CHOP REGIMEN)IN 4 WEEKLY INTERVALS WITH 50% DOSE REDUCTION
     Route: 042
  11. RITUXIMAB [Suspect]
     Active Substance: RITUXIMAB
     Indication: Neoplasm progression
     Dosage: 375 MG/M2, MODIFIED R-CHOP REGIMEN WAS ADMINISTERED IN 4-WEEKLY INTERVALS
     Route: 042
  12. VINCRISTINE [Suspect]
     Active Substance: VINCRISTINE
     Indication: Diffuse large B-cell lymphoma
     Dosage: 1.400MG/M2, MODIFIED R-CHOP REGIMEN WAS ADMINISTERED IN 4-WEEKLY INTERVALS.
     Route: 065
  13. VINCRISTINE [Suspect]
     Active Substance: VINCRISTINE
     Indication: Diffuse large B-cell lymphoma
     Dosage: 1.4 MG/M2 6 COURSES(MODIFIED R-CHOP REGIMEN) IN 4 WEEKLY INTERVALS WITH 50% DOSE REDUCTION
     Route: 065
  14. VINCRISTINE [Suspect]
     Active Substance: VINCRISTINE
     Indication: Neoplasm progression
     Dosage: 1.4 MG/M2, MODIFIED R-CHOP REGIMEN WAS ADMINISTERED IN 4-WEEKLY INTERVALS
     Route: 065

REACTIONS (16)
  - Diffuse large B-cell lymphoma [Fatal]
  - Malignant neoplasm progression [Fatal]
  - Cholestasis [Unknown]
  - Thrombosis [Unknown]
  - Hyperglycaemia [Unknown]
  - Hyperglycaemia [Unknown]
  - Febrile neutropenia [Unknown]
  - Pyrexia [Unknown]
  - Infection [Unknown]
  - Leukopenia [Unknown]
  - Anaemia [Unknown]
  - Blood creatinine increased [Unknown]
  - Diarrhoea [Unknown]
  - Nausea [Unknown]
  - Agitation [Unknown]
  - Therapy partial responder [Unknown]
